FAERS Safety Report 7724584-0 (Version None)
Quarter: 2011Q3

REPORT INFORMATION
  Report Type: 
  Country: None (occurrence: None)
  Receive Date: 20110901
  Receipt Date: 20110823
  Transmission Date: 20111222
  Serious: Yes (Hospitalization, Other)
  Sender: FDA-Public Use
  Company Number: US-ASTRAZENECA-2011SE33802

PATIENT
  Age: 63 Year
  Sex: Female

DRUGS (1)
  1. NEXIUM [Suspect]
     Route: 048

REACTIONS (7)
  - BLOOD GLUCOSE INCREASED [None]
  - ASTHENIA [None]
  - HEPATIC CIRRHOSIS [None]
  - DIABETES MELLITUS [None]
  - FATIGUE [None]
  - NERVOUS SYSTEM DISORDER [None]
  - MALAISE [None]
